FAERS Safety Report 5887706-2 (Version None)
Quarter: 2008Q3

REPORT INFORMATION
  Report Type: 
  Country: None (occurrence: None)
  Receive Date: 20080916
  Receipt Date: 20080916
  Transmission Date: 20090109
  Serious: Yes (Hospitalization)
  Sender: FDA-Public Use
  Company Number: None

PATIENT
  Age: 79 Year
  Sex: Female
  Weight: 105 kg

DRUGS (10)
  1. WARFARIN SODIUM [Suspect]
     Indication: ATRIAL FIBRILLATION
     Dosage: DAILY PO  (DURATION: CHRONIC)
     Route: 048
  2. ASPIRIN [Suspect]
     Indication: ATRIAL FIBRILLATION
     Dosage: PO  (DURATION: CHRONIC)
     Route: 048
  3. ALTACE [Concomitant]
  4. POTASSIUM CHLORIDE [Concomitant]
  5. LEXAPRO [Concomitant]
  6. HYTRIN [Concomitant]
  7. NORVASC [Concomitant]
  8. WARFARIN SODIUM [Concomitant]
  9. LASIX [Concomitant]
  10. ASPIRIN [Concomitant]

REACTIONS (8)
  - ACUTE RESPIRATORY FAILURE [None]
  - APHASIA [None]
  - CONVULSION [None]
  - DRUG TOXICITY [None]
  - INTERNATIONAL NORMALISED RATIO INCREASED [None]
  - MENTAL STATUS CHANGES [None]
  - SUBARACHNOID HAEMORRHAGE [None]
  - SUBDURAL HAEMORRHAGE [None]
